FAERS Safety Report 9019605 (Version 1)
Quarter: 2013Q1

REPORT INFORMATION
  Report Type: Spontaneous
  Country: US (occurrence: US)
  Receive Date: 20130118
  Receipt Date: 20130118
  Transmission Date: 20140127
  Serious: Yes (Death)
  Sender: FDA-Public Use
  Company Number: US-SHIONOGI, INC-2013000056

PATIENT
  Age: 62 Year
  Sex: Female

DRUGS (3)
  1. NAPROXEN [Suspect]
     Dosage: UNK
  2. ACETAMINOPHEN [Suspect]
     Dosage: UNK
  3. BENZODIAZEPINE DERIVATIVES [Suspect]
     Dosage: UNK

REACTIONS (1)
  - Completed suicide [Fatal]
